FAERS Safety Report 15409266 (Version 2)
Quarter: 2018Q4

REPORT INFORMATION
  Report Type: Spontaneous
  Country: PT (occurrence: PT)
  Receive Date: 20180920
  Receipt Date: 20181001
  Transmission Date: 20190204
  Serious: Yes (Life-Threatening)
  Sender: FDA-Public Use
  Company Number: PT-GUERBET-PT-20180030

PATIENT
  Age: 18 Year
  Sex: Male
  Weight: 56 kg

DRUGS (1)
  1. DOTAREM [Suspect]
     Active Substance: GADOTERATE MEGLUMINE
     Indication: DIAGNOSTIC PROCEDURE
     Route: 042

REACTIONS (4)
  - Altered state of consciousness [Recovered/Resolved]
  - Haemodynamic instability [Recovered/Resolved]
  - Lip oedema [Recovered/Resolved]
  - Laryngeal oedema [Recovered/Resolved]

NARRATIVE: CASE EVENT DATE: 20180823
